FAERS Safety Report 23239417 (Version 1)
Quarter: 2023Q4

REPORT INFORMATION
  Report Type: Spontaneous
  Country: NO (occurrence: NO)
  Receive Date: 20231129
  Receipt Date: 20231129
  Transmission Date: 20240110
  Serious: Yes (Disabling, Other)
  Sender: FDA-Public Use
  Company Number: NO-ELI_LILLY_AND_COMPANY-NO202311009256

PATIENT
  Age: 34 Year
  Sex: Male

DRUGS (2)
  1. OLANZAPINE [Suspect]
     Active Substance: OLANZAPINE
     Indication: Sedative therapy
     Route: 048
  2. QUETIAPINE [Suspect]
     Active Substance: QUETIAPINE
     Indication: Sedative therapy
     Route: 048

REACTIONS (23)
  - Brain injury [Not Recovered/Not Resolved]
  - Myocardial injury [Not Recovered/Not Resolved]
  - Renal injury [Not Recovered/Not Resolved]
  - Thyroid gland injury [Not Recovered/Not Resolved]
  - Gingival bleeding [Not Recovered/Not Resolved]
  - Gingival injury [Not Recovered/Not Resolved]
  - Thyroid disorder [Not Recovered/Not Resolved]
  - Tooth injury [Not Recovered/Not Resolved]
  - Liver injury [Not Recovered/Not Resolved]
  - Disability [Unknown]
  - Lung disorder [Unknown]
  - Gastrointestinal disorder [Not Recovered/Not Resolved]
  - Dyspepsia [Not Recovered/Not Resolved]
  - Cardiovascular disorder [Unknown]
  - Nicotine dependence [Unknown]
  - Poor dental condition [Unknown]
  - Decreased activity [Unknown]
  - Social problem [Unknown]
  - Impulse-control disorder [Unknown]
  - Abnormal behaviour [Unknown]
  - Dental caries [Unknown]
  - Binge eating [Unknown]
  - Off label use [Unknown]
